FAERS Safety Report 11102825 (Version 1)
Quarter: 2015Q2

REPORT INFORMATION
  Report Type: Spontaneous
  Country: US (occurrence: US)
  Receive Date: 20150511
  Receipt Date: 20150511
  Transmission Date: 20150821
  Serious: Yes (Death)
  Sender: FDA-Public Use
  Company Number: US-JNJFOC-20150424382

PATIENT
  Sex: Male
  Weight: 63.5 kg

DRUGS (1)
  1. RISPERDAL CONSTA [Suspect]
     Active Substance: RISPERIDONE
     Indication: SCHIZOPHRENIA
     Route: 030
     Dates: start: 200511

REACTIONS (8)
  - Imprisonment [Unknown]
  - Injury [Recovered/Resolved]
  - Gynaecomastia [Not Recovered/Not Resolved]
  - Concussion [Unknown]
  - Completed suicide [Fatal]
  - Hallucination, auditory [Unknown]
  - Weight increased [Recovering/Resolving]
  - Drug dose omission [Unknown]

NARRATIVE: CASE EVENT DATE: 2005
